FAERS Safety Report 8617245-7 (Version None)
Quarter: 2012Q3

REPORT INFORMATION
  Report Type: 
  Country: None (occurrence: None)
  Receive Date: 20120823
  Receipt Date: 20120814
  Transmission Date: 20120928
  Serious: Yes (Hospitalization, Other)
  Sender: FDA-Public Use
  Company Number: US-ASTRAZENECA-2012SE57612

PATIENT
  Age: 64 Year
  Sex: Female

DRUGS (1)
  1. SYMBICORT [Suspect]
     Dosage: 160/4.5 MCG, DAILY

REACTIONS (8)
  - WEIGHT INCREASED [None]
  - INTENTIONAL DRUG MISUSE [None]
  - BREATH SOUNDS ABNORMAL [None]
  - SPINAL CORD COMPRESSION [None]
  - OSTEOARTHRITIS [None]
  - CEREBROVASCULAR ACCIDENT [None]
  - DYSPNOEA [None]
  - ASTHMA [None]
